FAERS Safety Report 6163149-1 (Version None)
Quarter: 2009Q2

REPORT INFORMATION
  Report Type: 
  Country: None (occurrence: None)
  Receive Date: 20090420
  Receipt Date: 20090406
  Transmission Date: 20091009
  Serious: Yes (Other)
  Sender: FDA-Public Use
  Company Number: 8044611

PATIENT
  Sex: Female
  Weight: 1.8 kg

DRUGS (7)
  1. KEPPRA [Suspect]
     Indication: EPILEPSY
     Dosage: 0.5 DF /D TRP
     Route: 064
     Dates: start: 20080620, end: 20080622
  2. KEPPRA [Suspect]
     Indication: EPILEPSY
     Dosage: 2 DF /D TRP
     Route: 064
     Dates: start: 20080622, end: 20080701
  3. KEPPRA [Suspect]
     Indication: EPILEPSY
     Dosage: 1000 MG /D TRP
     Route: 064
     Dates: end: 20080101
  4. LAMICTAL [Concomitant]
  5. CARBATROL [Concomitant]
  6. REPLIVA [Concomitant]
  7. TYLENOL [Concomitant]

REACTIONS (3)
  - MATERNAL DRUGS AFFECTING FOETUS [None]
  - PREMATURE BABY [None]
  - SMALL FOR DATES BABY [None]
